FAERS Safety Report 10549756 (Version 1)
Quarter: 2014Q4

REPORT INFORMATION
  Report Type: Report from Study
  Country: JP (occurrence: JP)
  Receive Date: 20141028
  Receipt Date: 20141028
  Transmission Date: 20150529
  Serious: Yes (Death, Other)
  Sender: FDA-Public Use
  Company Number: JP-SHIRE-JP201407344

PATIENT
  Age: 60 Year
  Sex: Male

DRUGS (20)
  1. CALTAN [Concomitant]
     Active Substance: CALCIUM CARBONATE
     Dosage: 1500 MG, UNKNOWN
     Route: 048
     Dates: start: 20110621
  2. 405 (LANTHANUM CARBONATE) [Suspect]
     Active Substance: LANTHANUM CARBONATE
     Dosage: 1500 MG/DAY
     Route: 048
     Dates: start: 20100927, end: 20110829
  3. 405 (LANTHANUM CARBONATE) [Suspect]
     Active Substance: LANTHANUM CARBONATE
     Dosage: 2250 MG/DAY
     Route: 048
     Dates: start: 20120523, end: 20130416
  4. GASTER [Concomitant]
     Active Substance: FAMOTIDINE
     Indication: PRODUCT USED FOR UNKNOWN INDICATION
     Dosage: 10 MG, UNKNOWN
     Route: 048
  5. BAYASPIRIN [Concomitant]
     Active Substance: ASPIRIN
     Indication: PRODUCT USED FOR UNKNOWN INDICATION
     Dosage: 100 MG, UNKNOWN
     Route: 048
  6. METHYLCOBALAMIN [Concomitant]
     Active Substance: METHYLCOBALAMIN
     Indication: PRODUCT USED FOR UNKNOWN INDICATION
     Dosage: 1000 ?G, UNKNOWN
     Route: 048
  7. ALESION [Concomitant]
     Active Substance: EPINASTINE HYDROCHLORIDE
     Indication: PRODUCT USED FOR UNKNOWN INDICATION
     Dosage: 20 MG, UNKNOWN
     Route: 048
  8. 405 (LANTHANUM CARBONATE) [Suspect]
     Active Substance: LANTHANUM CARBONATE
     Indication: HYPERPHOSPHATAEMIA
     Dosage: 750 MG/DAY
     Route: 048
     Dates: start: 20140122, end: 20140218
  9. 405 (LANTHANUM CARBONATE) [Suspect]
     Active Substance: LANTHANUM CARBONATE
     Dosage: 1500 MG/DAY
     Route: 048
     Dates: start: 20130417, end: 20140121
  10. CALTAN [Concomitant]
     Active Substance: CALCIUM CARBONATE
     Dosage: 1500 MG, UNKNOWN
     Route: 048
     Dates: start: 20131023, end: 20131217
  11. ROCALTROL [Concomitant]
     Active Substance: CALCITRIOL
     Dosage: 0.25 ?G, UNKNOWN
     Route: 048
     Dates: start: 20100519, end: 20110620
  12. ROCALTROL [Concomitant]
     Active Substance: CALCITRIOL
     Indication: PRODUCT USED FOR UNKNOWN INDICATION
     Dosage: 1.0 ?G, UNKNOWN
     Route: 042
     Dates: start: 20081215, end: 20140224
  13. SEVELAMER HYDROCHLORIDE [Concomitant]
     Active Substance: SEVELAMER HYDROCHLORIDE
     Indication: HYPERPHOSPHATAEMIA
     Dosage: 1500 MG, UNKNOWN
     Route: 048
     Dates: start: 20120919, end: 20130522
  14. 405 (LANTHANUM CARBONATE) [Suspect]
     Active Substance: LANTHANUM CARBONATE
     Dosage: 750 MG/DAY
     Route: 048
     Dates: start: 20110830, end: 20120221
  15. 405 (LANTHANUM CARBONATE) [Suspect]
     Active Substance: LANTHANUM CARBONATE
     Dosage: 1500 MG/DAY
     Route: 048
     Dates: start: 20120222, end: 20120522
  16. CALTAN [Concomitant]
     Active Substance: CALCIUM CARBONATE
     Indication: HYPERPHOSPHATAEMIA
     Dosage: 3000 MG, UNKNOWN
     Route: 048
     Dates: start: 20100118, end: 20110620
  17. CALTAN [Concomitant]
     Active Substance: CALCIUM CARBONATE
     Dosage: 3000 MG, UNKNOWN
     Route: 048
     Dates: start: 20120418, end: 20131022
  18. LASIX [Concomitant]
     Active Substance: FUROSEMIDE
     Indication: PRODUCT USED FOR UNKNOWN INDICATION
     Dosage: 40 MG, UNKNOWN
     Route: 048
  19. DOPS [Concomitant]
     Active Substance: DROXIDOPA
     Indication: PRODUCT USED FOR UNKNOWN INDICATION
     Dosage: 200 MG, UNKNOWN
     Route: 048
  20. 405 (LANTHANUM CARBONATE) [Suspect]
     Active Substance: LANTHANUM CARBONATE
     Dosage: 750 MG/DAY
     Route: 048
     Dates: start: 20100726, end: 20100926

REACTIONS (3)
  - Hypoglycaemia [Fatal]
  - Respiratory arrest [Unknown]
  - Coma [Unknown]

NARRATIVE: CASE EVENT DATE: 20140227
